FAERS Safety Report 20178585 (Version 1)
Quarter: 2021Q4

REPORT INFORMATION
  Report Type: Spontaneous
  Country: JP (occurrence: JP)
  Receive Date: 20211214
  Receipt Date: 20211214
  Transmission Date: 20220303
  Serious: Yes (Death, Other)
  Sender: FDA-Public Use
  Company Number: JP-GALDERMA-JP2021019421

PATIENT

DRUGS (1)
  1. ROZEX (METRONIDAZOLE) [Suspect]
     Active Substance: METRONIDAZOLE
     Indication: Product used for unknown indication
     Dosage: 1 DOSAGE FORM, 1 BOTTLE IN ABOUT THREE TIMES
     Route: 061

REACTIONS (1)
  - Neoplasm malignant [Fatal]
